FAERS Safety Report 8333244 (Version 2)
Quarter: 2013Q2

REPORT INFORMATION
  Report Type: Spontaneous
  Country: US (occurrence: None)
  Receive Date: 20111130
  Receipt Date: 20120531
  Transmission Date: 20140414
  Serious: Yes (Hospitalization)
  Sender: FDA-Public Use
  Company Number: US201107006649

PATIENT
  Age: 41 Year
  Sex: Male
  Weight: 127 kg

DRUGS (8)
  1. BYETTA [Suspect]
     Indication: TYPE 2 DIABETES MELLITUS
     Dosage: 5 UG, BID, SUBCUTANEOUS, UG, BID, SUBCUTANEOUS
     Route: 058
     Dates: start: 20100812, end: 20101216
  2. METFORMIN HYDROCHLORIDE [Concomitant]
  3. LISINOPRIL (LISINOPRIL) [Concomitant]
  4. METOPROLOL TARTRATE [Concomitant]
  5. HYDROCHLOROTHIAZIDE (HYDROCHLOROTHIAZIDE) [Concomitant]
  6. CLONIDINE TRANSDERMAL SYSTEM [Concomitant]
  7. AMBIEN [Concomitant]
  8. DRISDOL [Concomitant]

REACTIONS (7)
  - ASTHENIA [None]
  - NAUSEA [None]
  - FATIGUE [None]
  - INCORRECT PRODUCT STORAGE [None]
  - ABDOMINAL PAIN [None]
  - DRUG INEFFECTIVE [None]
  - VOMITING [None]
